FAERS Safety Report 13472560 (Version 1)
Quarter: 2017Q2

REPORT INFORMATION
  Report Type: Spontaneous
  Country: FR (occurrence: FR)
  Receive Date: 20170424
  Receipt Date: 20170424
  Transmission Date: 20170830
  Serious: Yes (Other)
  Sender: FDA-Public Use
  Company Number: FR-PFIZER INC-2017164814

PATIENT
  Age: 17 Year
  Sex: Male

DRUGS (1)
  1. SERTRALINE PFIZER [Suspect]
     Active Substance: SERTRALINE HYDROCHLORIDE
     Dosage: 75 MG, DAILY
     Dates: start: 201608

REACTIONS (4)
  - Bilirubin conjugated increased [Unknown]
  - Blood bilirubin increased [Unknown]
  - Blood iron increased [Unknown]
  - Blood bilirubin unconjugated increased [Unknown]

NARRATIVE: CASE EVENT DATE: 201610
